FAERS Safety Report 9991727 (Version 1)
Quarter: 2014Q1

REPORT INFORMATION
  Report Type: Spontaneous
  Country: BR (occurrence: BR)
  Receive Date: 20140310
  Receipt Date: 20140310
  Transmission Date: 20141002
  Serious: Yes (Other)
  Sender: FDA-Public Use
  Company Number: BR-JNJFOC-20140300293

PATIENT
  Age: 14 Year
  Sex: Male
  Weight: 46 kg

DRUGS (6)
  1. RISPERDAL [Suspect]
     Indication: PSYCHOMOTOR HYPERACTIVITY
     Route: 065
  2. RISPERDAL [Suspect]
     Indication: PSYCHOMOTOR HYPERACTIVITY
     Route: 065
  3. RISPERDAL [Suspect]
     Indication: PSYCHOMOTOR HYPERACTIVITY
     Route: 065
  4. RISPERDAL [Suspect]
     Indication: AUTISM
     Route: 065
  5. RISPERDAL [Suspect]
     Indication: AUTISM
     Route: 065
  6. RISPERDAL [Suspect]
     Indication: AUTISM
     Route: 065

REACTIONS (4)
  - Poisoning [Unknown]
  - Insomnia [Unknown]
  - Aggression [Unknown]
  - Blood prolactin increased [Unknown]
